FAERS Safety Report 18622094 (Version 1)
Quarter: 2020Q4

REPORT INFORMATION
  Report Type: Spontaneous
  Country: US (occurrence: US)
  Receive Date: 20201216
  Receipt Date: 20201216
  Transmission Date: 20210114
  Serious: No
  Sender: FDA-Public Use
  Company Number: US-SA-2020SA356240

PATIENT

DRUGS (2)
  1. CETRIZINE [Concomitant]
     Active Substance: CETIRIZINE HYDROCHLORIDE
     Route: 065
  2. ALLEGRA ALLERGY [Suspect]
     Active Substance: FEXOFENADINE HYDROCHLORIDE
     Dosage: , TAKES 2 ALLEGRA 24 HOUR IN THE MORNING, AND ONE AT NIGHT180 MG, BID
     Route: 065

REACTIONS (2)
  - Asthenia [Unknown]
  - Tremor [Unknown]
